FAERS Safety Report 25307062 (Version 1)
Quarter: 2025Q2

REPORT INFORMATION
  Report Type: Spontaneous
  Country: DE (occurrence: DE)
  Receive Date: 20250513
  Receipt Date: 20250513
  Transmission Date: 20250716
  Serious: Yes (Life-Threatening)
  Sender: SANDOZ
  Company Number: DE-ROCHE-10000178563

PATIENT
  Sex: Male

DRUGS (7)
  1. CYCLOPHOSPHAMIDE [Suspect]
     Active Substance: CYCLOPHOSPHAMIDE
     Indication: Diffuse large B-cell lymphoma
     Route: 065
  2. DOXORUBICIN [Suspect]
     Active Substance: DOXORUBICIN
     Indication: Diffuse large B-cell lymphoma
     Route: 065
  3. POLIVY [Suspect]
     Active Substance: POLATUZUMAB VEDOTIN-PIIQ
     Dosage: 1.8 MG/KG, Q3W MG/KG
     Route: 042
     Dates: start: 20240822, end: 20241205
  4. POLIVY [Suspect]
     Active Substance: POLATUZUMAB VEDOTIN-PIIQ
     Indication: Diffuse large B-cell lymphoma
     Route: 065
  5. PREDNISONE [Suspect]
     Active Substance: PREDNISONE
     Indication: Diffuse large B-cell lymphoma
     Route: 065
  6. RITUXIMAB [Suspect]
     Active Substance: RITUXIMAB
     Dosage: 375 MG/M2, Q3W MG/M2
     Route: 042
     Dates: start: 20240823, end: 20250401
  7. RITUXIMAB [Suspect]
     Active Substance: RITUXIMAB
     Indication: Diffuse large B-cell lymphoma
     Route: 065

REACTIONS (1)
  - Nervous system disorder [Not Recovered/Not Resolved]

NARRATIVE: CASE EVENT DATE: 20241112
